FAERS Safety Report 8960542 (Version 2)
Quarter: 2013Q1

REPORT INFORMATION
  Report Type: Spontaneous
  Country: DE (occurrence: None)
  Receive Date: 20121203
  Receipt Date: 20121205
  Transmission Date: 20140127
  Serious: Yes (Hospitalization)
  Sender: FDA-Public Use
  Company Number: ES-2012-3943

PATIENT
  Age: 60 Year
  Sex: Female
  Weight: 61 kg

DRUGS (2)
  1. NAVELBINE [Suspect]
     Indication: BREAST CANCER METASTATIC
     Route: 042
     Dates: start: 20121025, end: 20121108
  2. BIBW 2992 (AFATINIB) [Suspect]
     Indication: BREAST CANCER METASTATIC
     Dates: start: 20121025, end: 20121112

REACTIONS (4)
  - Enteritis [None]
  - Rash [None]
  - Decreased appetite [None]
  - Asthenia [None]
